FAERS Safety Report 5532522-4 (Version None)
Quarter: 2007Q4

REPORT INFORMATION
  Report Type: 
  Country: None (occurrence: None)
  Receive Date: 20071120
  Receipt Date: 20070719
  Transmission Date: 20080405
  Serious: No
  Sender: FDA-Public Use
  Company Number: WAES 0707USA03237

PATIENT
  Age: 67 Year
  Sex: Female

DRUGS (4)
  1. JANUVIA [Suspect]
     Indication: DIABETES MELLITUS
     Dosage: 100 MG/DAILY/PO
     Route: 048
     Dates: start: 20070628
  2. GLUCOVANCE [Concomitant]
  3. NEXIUM [Concomitant]
  4. ZOCOR [Concomitant]

REACTIONS (1)
  - BLOOD GLUCOSE ABNORMAL [None]
